FAERS Safety Report 10035230 (Version 1)
Quarter: 2014Q1

REPORT INFORMATION
  Report Type: Spontaneous
  Country: US (occurrence: None)
  Receive Date: 20140306
  Receipt Date: 20140306
  Transmission Date: 20141002
  Serious: Yes (Other)
  Sender: FDA-Public Use
  Company Number: 163-21880-13122662

PATIENT
  Age: 64 Year
  Sex: Male
  Weight: 87.5 kg

DRUGS (3)
  1. REVLIMID [Suspect]
     Indication: PLASMA CELL MYELOMA
     Route: 048
     Dates: start: 201207
  2. BAYER HEART ADVANTAGE (ACETYLSALICYLIC ACID W/SITOSTEROLS) [Concomitant]
  3. GABAPENTIN (GABAPENTIN) [Concomitant]

REACTIONS (2)
  - Amnesia [None]
  - Rash [None]
